FAERS Safety Report 4626432-4 (Version None)
Quarter: 2005Q2

REPORT INFORMATION
  Report Type: 
  Country: None (occurrence: None)
  Receive Date: 20050404
  Receipt Date: 20030122
  Transmission Date: 20051028
  Serious: Yes (Other)
  Sender: FDA-Public Use
  Company Number: US-ABBOTT-03P-163-0209421-00

PATIENT
  Sex: Male

DRUGS (4)
  1. TRICOR [Suspect]
     Indication: HYPERTRIGLYCERIDAEMIA
     Route: 048
  2. ATENOLOL [Concomitant]
     Indication: HYPERTENSION
     Route: 048
  3. RAMIPRIL [Concomitant]
     Indication: HYPERTENSION
     Route: 048
  4. HYDROCHLOROTHIAZIDE [Concomitant]
     Indication: HYPERTENSION
     Route: 048

REACTIONS (2)
  - HEPATIC CIRRHOSIS [None]
  - HEPATIC ENZYME INCREASED [None]
